FAERS Safety Report 6662002-4 (Version None)
Quarter: 2010Q1

REPORT INFORMATION
  Report Type: 
  Country: None (occurrence: None)
  Receive Date: 20100331
  Receipt Date: 20091210
  Transmission Date: 20100710
  Serious: Yes (Other)
  Sender: FDA-Public Use
  Company Number: US-BRISTOL-MYERS SQUIBB COMPANY-14881114

PATIENT
  Age: 5 Decade
  Sex: Male

DRUGS (3)
  1. ERBITUX [Suspect]
     Indication: COLORECTAL CANCER
     Dates: start: 20090101
  2. BENADRYL [Concomitant]
     Indication: PREMEDICATION
  3. DECADRON [Concomitant]
     Indication: PREMEDICATION

REACTIONS (2)
  - BRONCHOSPASM [None]
  - PRURITUS [None]
